FAERS Safety Report 5902503-7 (Version None)
Quarter: 2008Q3

REPORT INFORMATION
  Report Type: 
  Country: None (occurrence: None)
  Receive Date: 20080929
  Receipt Date: 20080915
  Transmission Date: 20090109
  Serious: No
  Sender: FDA-Public Use
  Company Number: DK-ELI_LILLY_AND_COMPANY-DK200809003354

PATIENT
  Sex: Male
  Weight: 88.8 kg

DRUGS (1)
  1. DULOXETINE HYDROCHLORIDE [Suspect]
     Dosage: 60 MG, DAILY (1/D)
     Route: 065
     Dates: start: 20080501

REACTIONS (1)
  - HEPATIC ENZYME INCREASED [None]
